FAERS Safety Report 5106706-3 (Version None)
Quarter: 2006Q3

REPORT INFORMATION
  Report Type: 
  Country: None (occurrence: None)
  Receive Date: 20060731
  Receipt Date: 20050729
  Transmission Date: 20061208
  Serious: Yes (Other)
  Sender: FDA-Public Use
  Company Number: US-JNJFOC-20050800460

PATIENT
  Age: 45 Year
  Sex: Male
  Weight: 90.7194 kg

DRUGS (5)
  1. RISPERDAL [Suspect]
     Indication: PSYCHOTIC DISORDER
     Dosage: 6 MG, 1 IN 1 DAY, ORAL
     Route: 048
     Dates: start: 20010101, end: 20040301
  2. ZOLOFT [Concomitant]
  3. COZAAR [Concomitant]
  4. HYDROCHLOROTHIAZIDE [Concomitant]
  5. LESCOL (FLUVASTATN SODIUM) [Concomitant]

REACTIONS (5)
  - BLOOD CHOLESTEROL INCREASED [None]
  - DIABETES MELLITUS INADEQUATE CONTROL [None]
  - DIABETES MELLITUS NON-INSULIN-DEPENDENT [None]
  - JOINT INJURY [None]
  - ROAD TRAFFIC ACCIDENT [None]
